FAERS Safety Report 8300701-9 (Version None)
Quarter: 2012Q2

REPORT INFORMATION
  Report Type: 
  Country: None (occurrence: None)
  Receive Date: 20120420
  Receipt Date: 20120402
  Transmission Date: 20120825
  Serious: No
  Sender: FDA-Public Use
  Company Number: US-BAYER-2012-004470

PATIENT
  Sex: Female

DRUGS (1)
  1. SAFYRAL [Suspect]
     Indication: POLYCYSTIC OVARIES
     Dosage: UNK
     Dates: start: 20110501

REACTIONS (4)
  - WEIGHT INCREASED [None]
  - ABDOMINAL PAIN [None]
  - ACNE [None]
  - MENSTRUAL DISORDER [None]
